FAERS Safety Report 5280350-X (Version None)
Quarter: 2007Q1

REPORT INFORMATION
  Report Type: 
  Country: None (occurrence: None)
  Receive Date: 20070329
  Receipt Date: 20070316
  Transmission Date: 20070707
  Serious: Yes (Hospitalization)
  Sender: FDA-Public Use
  Company Number: AU-ELI_LILLY_AND_COMPANY-AU200703004434

PATIENT
  Age: 59 Year
  Sex: Female

DRUGS (2)
  1. PACLITAXEL [Suspect]
     Indication: BREAST CANCER
     Dosage: 324 MG, UNK
     Dates: start: 20070201
  2. GEMCITABINE HCL [Suspect]
     Indication: BREAST CANCER
     Dosage: 3724 MG, UNK
     Dates: start: 20070201

REACTIONS (1)
  - BLOOD CULTURE POSITIVE [None]
